FAERS Safety Report 10040193 (Version 1)
Quarter: 2014Q1

REPORT INFORMATION
  Report Type: Spontaneous
  Country: US (occurrence: US)
  Receive Date: 20140327
  Receipt Date: 20140327
  Transmission Date: 20141002
  Serious: Yes (Hospitalization, Disabling, Other)
  Sender: FDA-Public Use
  Company Number: US-009507513-1403USA011901

PATIENT
  Sex: Male

DRUGS (1)
  1. SYLATRON [Suspect]
     Indication: MALIGNANT MELANOMA
     Dosage: STRENGTH:296/1.25, 0.4 ML WEEKLY
     Route: 058
     Dates: start: 20131021, end: 201402

REACTIONS (1)
  - Pancreatitis [Unknown]
